FAERS Safety Report 6399783-3 (Version None)
Quarter: 2009Q4

REPORT INFORMATION
  Report Type: 
  Country: None (occurrence: None)
  Receive Date: 20091014
  Receipt Date: 20091005
  Transmission Date: 20100525
  Serious: Yes (Other)
  Sender: FDA-Public Use
  Company Number: JP-ASTRAZENECA-2009SE18703

PATIENT
  Age: 66 Year
  Sex: Male

DRUGS (1)
  1. BLOPRESS [Suspect]
     Route: 048
     Dates: start: 20061201, end: 20070101

REACTIONS (1)
  - CHOLESTASIS [None]
